FAERS Safety Report 25332139 (Version 4)
Quarter: 2025Q3

REPORT INFORMATION
  Report Type: Spontaneous
  Country: CA (occurrence: CA)
  Receive Date: 20250519
  Receipt Date: 20250908
  Transmission Date: 20251021
  Serious: Yes (Hospitalization, Other)
  Sender: BRISTOL-MYERS SQUIBB COMPANY
  Company Number: CA-JNJFOC-20250502601

PATIENT
  Age: 78 Year
  Sex: Male
  Weight: 76 kg

DRUGS (72)
  1. LENALIDOMIDE [Suspect]
     Active Substance: LENALIDOMIDE
     Indication: Plasma cell myeloma
     Dates: start: 20190514, end: 20250429
  2. DARATUMUMAB\HYALURONIDASE-FIHJ [Suspect]
     Active Substance: DARATUMUMAB\HYALURONIDASE-FIHJ
     Indication: Plasma cell myeloma
     Dates: start: 20190514, end: 20250409
  3. BORTEZOMIB [Suspect]
     Active Substance: BORTEZOMIB
     Indication: Plasma cell myeloma
     Dates: start: 20190514, end: 20191101
  4. DEXAMETHASONE [Suspect]
     Active Substance: DEXAMETHASONE
     Indication: Plasma cell myeloma
     Dates: start: 20190514, end: 20250423
  5. LIPITOR [Concomitant]
     Active Substance: ATORVASTATIN CALCIUM
     Indication: Dyslipidaemia
     Dates: start: 20241112
  6. LIPITOR [Concomitant]
     Active Substance: ATORVASTATIN CALCIUM
     Dosage: DAILY
  7. LYRICA [Concomitant]
     Active Substance: PREGABALIN
     Indication: Arthralgia
     Dosage: FREQUENCY: 0.5 DAY
     Dates: start: 20190423, end: 20200501
  8. CEFADROXIL [Concomitant]
     Active Substance: CEFADROXIL
     Indication: Product used for unknown indication
     Dosage: FREQ: 0.5 DAY
     Dates: start: 20190503, end: 20190509
  9. DILAUDID [Concomitant]
     Active Substance: HYDROMORPHONE HYDROCHLORIDE
     Indication: Arthralgia
     Dosage: FREQ: 0.5 DAY
     Dates: start: 20190320, end: 20190506
  10. DILAUDID [Concomitant]
     Active Substance: HYDROMORPHONE HYDROCHLORIDE
     Dates: start: 20190320, end: 20190506
  11. DILAUDID [Concomitant]
     Active Substance: HYDROMORPHONE HYDROCHLORIDE
     Dates: start: 20190506, end: 20190729
  12. METHADONE [Concomitant]
     Active Substance: METHADONE HYDROCHLORIDE
     Indication: Arthralgia
     Dosage: FREQ: 0.5 DAYS
     Dates: start: 20190506, end: 20190719
  13. TYLENOL ARTHRITIS PAIN [Concomitant]
     Active Substance: ACETAMINOPHEN
     Indication: Arthralgia
     Dosage: FREQ: 0.33 DAY
     Dates: start: 20190506, end: 20190807
  14. HYDROMORPHONE [Concomitant]
     Active Substance: HYDROMORPHONE
     Indication: Arthralgia
     Dosage: FREQ: 0.5 DAY
     Dates: start: 20190506, end: 20190702
  15. HYDROMORPHONE [Concomitant]
     Active Substance: HYDROMORPHONE
     Dosage: FREQ: 0.5 DAY
     Dates: start: 20190702, end: 20190719
  16. VALTREX [Concomitant]
     Active Substance: VALACYCLOVIR HYDROCHLORIDE
     Indication: Prophylaxis
  17. ASPIRIN [Concomitant]
     Active Substance: ASPIRIN
     Indication: Prophylaxis
  18. ALLOPURINOL [Concomitant]
     Active Substance: ALLOPURINOL
     Indication: Product used for unknown indication
     Dosage: DAILY
     Dates: start: 20190517, end: 20190523
  19. FILGRASTIM [Concomitant]
     Active Substance: FILGRASTIM
     Indication: Product used for unknown indication
     Dosage: FREQ: 0.5 WEEK
     Dates: start: 20190611, end: 20190611
  20. FILGRASTIM [Concomitant]
     Active Substance: FILGRASTIM
     Dosage: FREQ: 0.5 WEEK
     Dates: start: 20190603, end: 20190603
  21. METOCLOPRAMIDE [Concomitant]
     Active Substance: METOCLOPRAMIDE
     Indication: Product used for unknown indication
     Dosage: FREQ: 0.33 DAY
     Dates: start: 20190716, end: 20191001
  22. SULCRATE PLUS [Concomitant]
     Indication: Product used for unknown indication
  23. PIPERACILLIN AND TAZOBACTAM [Concomitant]
     Active Substance: PIPERACILLIN SODIUM\TAZOBACTAM SODIUM
     Indication: Product used for unknown indication
     Dates: start: 20190811, end: 20190812
  24. FLUCONAZOLE [Concomitant]
     Active Substance: FLUCONAZOLE
     Indication: Product used for unknown indication
     Dates: start: 20190805, end: 20191101
  25. PANTALOC [Concomitant]
     Indication: Hiatus hernia
  26. ANDROGEL [Concomitant]
     Active Substance: TESTOSTERONE
     Indication: Product used for unknown indication
     Dates: start: 20190802, end: 20200802
  27. POLYETHYLENE GLYCOL 3350 [Concomitant]
     Active Substance: POLYETHYLENE GLYCOL 3350
     Indication: Product used for unknown indication
     Dosage: DAILY
     Dates: start: 20190506, end: 20190806
  28. ZOPICLONE [Concomitant]
     Active Substance: ZOPICLONE
     Indication: Insomnia
     Dates: start: 20190415, end: 20191024
  29. VITAMIN D NOS [Concomitant]
     Active Substance: CHOLECALCIFEROL\ERGOCALCIFEROL
     Indication: Supplementation therapy
     Dosage: DAILY
     Dates: start: 20190802
  30. AMOXICILLIN\CLAVULANATE POTASSIUM [Concomitant]
     Active Substance: AMOXICILLIN\CLAVULANATE POTASSIUM
     Indication: Product used for unknown indication
     Dates: start: 20190812, end: 20190821
  31. DALTEPARIN [Concomitant]
     Active Substance: DALTEPARIN
     Indication: Product used for unknown indication
     Dates: start: 20190904, end: 20191007
  32. DALTEPARIN [Concomitant]
     Active Substance: DALTEPARIN
     Dosage: DAILY
     Dates: start: 20191006, end: 20200310
  33. METOCLOPRAMIDE [Concomitant]
     Active Substance: METOCLOPRAMIDE
     Indication: Product used for unknown indication
     Dosage: FREQ: 0.25 DAY
     Dates: start: 20191002, end: 20200104
  34. XARELTO [Concomitant]
     Active Substance: RIVAROXABAN
     Indication: Prophylaxis
     Dates: start: 20200311, end: 20210831
  35. NYSTATIN [Concomitant]
     Active Substance: NYSTATIN
     Indication: Product used for unknown indication
     Dosage: DAILY?LIQUID
     Dates: start: 20190913, end: 20210208
  36. DOMPERIDONE [Concomitant]
     Active Substance: DOMPERIDONE
     Indication: Abdominal pain upper
     Dates: start: 20191025, end: 20200208
  37. NABILONE [Concomitant]
     Active Substance: NABILONE
     Indication: Insomnia
  38. HYDROCORTISONE [Concomitant]
     Active Substance: HYDROCORTISONE
     Indication: Rash
     Dosage: FREQ: 0.5 DAY
     Dates: start: 20201020, end: 20201026
  39. HYDROCORTISONE [Concomitant]
     Active Substance: HYDROCORTISONE
     Dosage: FREQ: 0.5 DAY
     Dates: start: 20201027, end: 20201111
  40. BETAMETHASONE VALERATE [Concomitant]
     Active Substance: BETAMETHASONE VALERATE
     Indication: Rash
     Dosage: FREQ: 0.5 DAY
     Dates: start: 20201112, end: 20210113
  41. TESTOSTERONE UNDECANOATE [Concomitant]
     Active Substance: TESTOSTERONE UNDECANOATE
     Indication: Blood testosterone decreased
     Dosage: FREQ: 0.5 DAY
     Dates: start: 20220509
  42. TESTOSTERONE UNDECANOATE [Concomitant]
     Active Substance: TESTOSTERONE UNDECANOATE
     Dosage: FREQ: 0.5 DAY
     Dates: start: 20201103, end: 20220223
  43. VIAGRA [Concomitant]
     Active Substance: SILDENAFIL CITRATE
     Indication: Blood testosterone decreased
     Dates: start: 20210206, end: 20230702
  44. COVID-19 VACCINE [Concomitant]
     Indication: Prophylaxis
     Dates: start: 20210914, end: 20210914
  45. COVID-19 VACCINE [Concomitant]
     Dates: start: 20210514, end: 20210514
  46. ELIQUIS [Concomitant]
     Active Substance: APIXABAN
     Indication: Thrombosis prophylaxis
     Dosage: FREQ: 0.5 DAY
     Dates: start: 20210901
  47. EVUSHELD [Concomitant]
     Active Substance: CILGAVIMAB\TIXAGEVIMAB
     Indication: Prophylaxis
     Dates: start: 20220623, end: 20220623
  48. IRON [Concomitant]
     Active Substance: IRON
     Indication: Prophylaxis
     Dates: start: 20210720, end: 20211025
  49. FERROUS FUMARATE [Concomitant]
     Active Substance: FERROUS FUMARATE
     Indication: Prophylaxis
     Dates: start: 20211028, end: 20220809
  50. MODERNA COVID-19 VACCINE [Concomitant]
     Active Substance: ELASOMERAN
     Indication: Prophylaxis
  51. PAXLOVID [Concomitant]
     Active Substance: NIRMATRELVIR\RITONAVIR
     Indication: COVID-19
     Dates: start: 20221122, end: 20221126
  52. TADALAFIL [Concomitant]
     Active Substance: TADALAFIL
     Indication: Erectile dysfunction
  53. INFLUENZA VIRUS VACCINE [Concomitant]
     Active Substance: INFLUENZA VIRUS VACCINE
     Indication: Prophylaxis
     Dates: start: 20231027, end: 20231027
  54. DOXYCYCLINE [Concomitant]
     Active Substance: DOXYCYCLINE
     Indication: Upper respiratory tract infection
     Dosage: FREQ: 0.5 DAY
     Dates: start: 20231120, end: 20231126
  55. DOXYCYCLINE [Concomitant]
     Active Substance: DOXYCYCLINE
     Dosage: FREQ: 0.5 DAY
     Dates: start: 20250430
  56. MOXIFLOXACIN [Concomitant]
     Active Substance: MOXIFLOXACIN
     Indication: Upper respiratory tract infection
     Dosage: FREQ: 0.25 DAYS
     Dates: start: 20240401, end: 20240417
  57. MOXIFLOXACIN [Concomitant]
     Active Substance: MOXIFLOXACIN
     Indication: Cataract
     Dates: start: 20231128, end: 20231204
  58. MOXIFLOXACIN [Concomitant]
     Active Substance: MOXIFLOXACIN
     Dates: start: 20250429, end: 20250430
  59. ALBUTEROL [Concomitant]
     Active Substance: ALBUTEROL
     Indication: Upper respiratory tract infection
  60. EZETIMIBE [Concomitant]
     Active Substance: EZETIMIBE
     Indication: Dyslipidaemia
  61. EZETIMIBE [Concomitant]
     Active Substance: EZETIMIBE
  62. PREDNISOLONE [Concomitant]
     Active Substance: PREDNISOLONE
     Indication: Cataract
     Dosage: FREQ: 0.25 DAY
     Dates: start: 20240325, end: 20240411
  63. PREDNISOLONE [Concomitant]
     Active Substance: PREDNISOLONE
     Dosage: FREQ: 0.25 DAY
     Dates: start: 20240401, end: 20240417
  64. BRIMONIDINE [Concomitant]
     Active Substance: BRIMONIDINE TARTRATE
     Indication: Cataract
     Dosage: FREQ: 0.5 DAY
     Dates: start: 20240329, end: 20240402
  65. DICLOFENAC [Concomitant]
     Active Substance: DICLOFENAC
     Indication: Osteoarthritis
     Dosage: FREQ: 0.5 DAY
     Dates: start: 20240601
  66. AMOXICILLIN\CLAVULANATE POTASSIUM [Concomitant]
     Active Substance: AMOXICILLIN\CLAVULANATE POTASSIUM
     Indication: Upper respiratory tract infection
     Dosage: FREQ: 0.5 DAY
     Dates: start: 20241210, end: 20241215
  67. FLUTICASONE FUROATE [Concomitant]
     Active Substance: FLUTICASONE FUROATE
     Indication: Upper respiratory tract infection
     Dates: start: 20241210, end: 20241210
  68. FLUTICASONE FUROATE [Concomitant]
     Active Substance: FLUTICASONE FUROATE
  69. DEXTROSE\SODIUM CHLORIDE [Concomitant]
     Active Substance: DEXTROSE\SODIUM CHLORIDE
     Indication: Polyuria
  70. ATIVAN [Concomitant]
     Active Substance: LORAZEPAM
     Indication: Insomnia
     Dates: start: 20250501, end: 20250504
  71. MELATONIN [Concomitant]
     Active Substance: MELATONIN
     Indication: Atrial fibrillation
     Dates: start: 20250503
  72. METOPROLOL [Concomitant]
     Active Substance: METOPROLOL
     Indication: Atrial fibrillation

REACTIONS (3)
  - Asthma [Recovered/Resolved]
  - Pneumonia haemophilus [Recovered/Resolved]
  - Atrial fibrillation [Unknown]

NARRATIVE: CASE EVENT DATE: 20250430
